FAERS Safety Report 8592785-8 (Version None)
Quarter: 2012Q3

REPORT INFORMATION
  Report Type: 
  Country: None (occurrence: None)
  Receive Date: 20120814
  Receipt Date: 20120810
  Transmission Date: 20120928
  Serious: Yes (Death)
  Sender: FDA-Public Use
  Company Number: AU-ASTRAZENECA-2012SE56817

PATIENT
  Age: 77 Year
  Sex: Female

DRUGS (1)
  1. FASLODEX [Suspect]
     Dosage: TWO 250MG MONTHLY
     Route: 030

REACTIONS (1)
  - BREAST CANCER [None]
